FAERS Safety Report 9711359 (Version 1)
Quarter: 2013Q4

REPORT INFORMATION
  Report Type: Spontaneous
  Country: US (occurrence: None)
  Receive Date: 20131125
  Receipt Date: 20131125
  Transmission Date: 20140711
  Serious: No
  Sender: FDA-Public Use
  Company Number: None

PATIENT
  Age: 23 Year
  Sex: Female
  Weight: 57.15 kg

DRUGS (1)
  1. MIRENA [Suspect]

REACTIONS (10)
  - Muscle spasms [None]
  - Vaginal haemorrhage [None]
  - Menstrual disorder [None]
  - Breast mass [None]
  - Pruritus [None]
  - Breast tenderness [None]
  - Breast swelling [None]
  - Acne [None]
  - Fat redistribution [None]
  - Hair growth abnormal [None]
